FAERS Safety Report 8344093-8 (Version None)
Quarter: 2012Q2

REPORT INFORMATION
  Report Type: 
  Country: None (occurrence: None)
  Receive Date: 20120504
  Receipt Date: 20120418
  Transmission Date: 20120825
  Serious: Yes (Other)
  Sender: FDA-Public Use
  Company Number: 2012AP001108

PATIENT
  Age: 52 Year
  Sex: Male
  Weight: 94.3482 kg

DRUGS (6)
  1. QUINAPRIL HCL [Suspect]
     Indication: BLOOD PRESSURE ABNORMAL
     Dosage: 40 MG, BID, QD
  2. MELOXICAM [Suspect]
     Indication: PRODUCT USED FOR UNKNOWN INDICATION
  3. CELEBREX [Suspect]
     Indication: BACK PAIN
     Dosage: 200 MG, BID
     Dates: end: 19980101
  4. CELEBREX [Suspect]
     Indication: ARTHRALGIA
     Dosage: 200 MG, BID
     Dates: end: 19980101
  5. CELEBREX [Suspect]
     Indication: ARTHRITIS
     Dosage: 200 MG, BID
     Dates: end: 19980101
  6. DOCUSATE SODIUM [Suspect]
     Indication: PRODUCT USED FOR UNKNOWN INDICATION

REACTIONS (4)
  - HAEMATOCHEZIA [None]
  - CHEST PAIN [None]
  - FLATULENCE [None]
  - ANXIETY [None]
